FAERS Safety Report 18367746 (Version 1)
Quarter: 2020Q4

REPORT INFORMATION
  Report Type: Spontaneous
  Country: JP (occurrence: JP)
  Receive Date: 20201009
  Receipt Date: 20201009
  Transmission Date: 20210114
  Serious: Yes (Hospitalization, Other)
  Sender: FDA-Public Use
  Company Number: JP-SA-2020SA274076

PATIENT

DRUGS (3)
  1. INSULIN LISPRO [Suspect]
     Active Substance: INSULIN LISPRO
     Indication: TYPE 1 DIABETES MELLITUS
  2. INSULIN ASPART [Suspect]
     Active Substance: INSULIN ASPART
     Indication: TYPE 1 DIABETES MELLITUS
  3. INSULIN GLARGINE [Concomitant]
     Active Substance: INSULIN GLARGINE
     Indication: TYPE 1 DIABETES MELLITUS
     Dosage: UNK

REACTIONS (14)
  - Acute kidney injury [Recovered/Resolved]
  - Blood immunoglobulin E increased [Recovered/Resolved]
  - Oedema peripheral [Recovered/Resolved]
  - Renal disorder [Recovered/Resolved]
  - Protein urine present [Recovered/Resolved]
  - Tri-iodothyronine decreased [Recovered/Resolved]
  - Nephrotic syndrome [Recovered/Resolved]
  - Weight increased [Recovered/Resolved]
  - Anti-GAD antibody positive [Recovered/Resolved]
  - Urine output decreased [Recovered/Resolved]
  - Glomerulosclerosis [Recovered/Resolved]
  - Blood immunoglobulin G decreased [Recovered/Resolved]
  - Oliguria [Recovered/Resolved]
  - Rash pruritic [Recovered/Resolved]
